FAERS Safety Report 6023692-2 (Version None)
Quarter: 2008Q4

REPORT INFORMATION
  Report Type: 
  Country: None (occurrence: None)
  Receive Date: 20081223
  Receipt Date: 20081217
  Transmission Date: 20090506
  Serious: Yes (Hospitalization)
  Sender: FDA-Public Use
  Company Number: 2008003213

PATIENT
  Age: 71 Year
  Sex: Male

DRUGS (2)
  1. TARCEVA [Suspect]
     Dosage: 150 MG, ORAL
     Route: 048
     Dates: start: 20081025, end: 20081106
  2. DELAPRIDE (DELAPRIDE) [Concomitant]

REACTIONS (2)
  - DYSPNOEA [None]
  - PLEURAL EFFUSION [None]
